FAERS Safety Report 6927392-3 (Version None)
Quarter: 2010Q3

REPORT INFORMATION
  Report Type: 
  Country: None (occurrence: None)
  Receive Date: 20100817
  Receipt Date: 20100806
  Transmission Date: 20110219
  Serious: No
  Sender: FDA-Public Use
  Company Number: 2008BI000808

PATIENT
  Age: 27 Year
  Sex: Female

DRUGS (1)
  1. TYSABRI [Suspect]
     Indication: MULTIPLE SCLEROSIS
     Route: 042
     Dates: start: 20071001, end: 20090527

REACTIONS (4)
  - ABDOMINAL DISCOMFORT [None]
  - NASOPHARYNGITIS [None]
  - ORAL HERPES [None]
  - UPPER RESPIRATORY TRACT INFECTION [None]
